FAERS Safety Report 7867599-4 (Version None)
Quarter: 2011Q4

REPORT INFORMATION
  Report Type: 
  Country: None (occurrence: None)
  Receive Date: 20111028
  Receipt Date: 20100315
  Transmission Date: 20120403
  Serious: No
  Sender: FDA-Public Use
  Company Number: US-BAYER-201016588NA

PATIENT
  Age: 70 Year
  Sex: Female

DRUGS (3)
  1. ANTIHYPERTENSIVES [Concomitant]
  2. AVELOX [Suspect]
     Indication: SINUSITIS
  3. AVELOX [Suspect]
     Indication: EAR INFECTION
     Dosage: 400 MG, QD
     Dates: start: 20100101

REACTIONS (1)
  - NERVOUSNESS [None]
